FAERS Safety Report 10733505 (Version 1)
Quarter: 2015Q1

REPORT INFORMATION
  Report Type: Spontaneous
  Country: FR (occurrence: FR)
  Receive Date: 20150123
  Receipt Date: 20150123
  Transmission Date: 20150721
  Serious: Yes (Hospitalization)
  Sender: FDA-Public Use
  Company Number: FR-ASTRAZENECA-2015SE06029

PATIENT
  Age: 28053 Day
  Sex: Female

DRUGS (6)
  1. DIGOXINE [Concomitant]
     Active Substance: DIGOXIN
     Dosage: FIVE DAYS PER WEEK
  2. XARELTO [Concomitant]
     Active Substance: RIVAROXABAN
  3. ARIMIDEX [Suspect]
     Active Substance: ANASTROZOLE
     Indication: BREAST CANCER
     Route: 048
     Dates: start: 20141223, end: 20141228
  4. CORDARONE [Concomitant]
     Active Substance: AMIODARONE HYDROCHLORIDE
     Dosage: FIVE DAYS PER WEEK
  5. APROVEL [Concomitant]
     Active Substance: IRBESARTAN
  6. LASILIX [Concomitant]
     Active Substance: FUROSEMIDE

REACTIONS (2)
  - Pancreatitis acute [Unknown]
  - Abdominal pain [Unknown]

NARRATIVE: CASE EVENT DATE: 20141226
